FAERS Safety Report 10202187 (Version 3)
Quarter: 2014Q2

REPORT INFORMATION
  Report Type: Spontaneous
  Country: GR (occurrence: GR)
  Receive Date: 20140528
  Receipt Date: 20140625
  Transmission Date: 20141212
  Serious: Yes (Disabling)
  Sender: FDA-Public Use
  Company Number: GR-GLAXOSMITHKLINE-B0997212A

PATIENT
  Age: 24 Year
  Sex: Male

DRUGS (5)
  1. ATRIANCE [Suspect]
     Indication: LYMPHOCYTIC LEUKAEMIA
     Dosage: 1500MGM2 PER DAY
     Route: 042
     Dates: start: 20140408
  2. ALLOPURINOL [Concomitant]
  3. ONDANSETRON [Concomitant]
  4. COVERSYL [Concomitant]
  5. LOPRESOR [Concomitant]

REACTIONS (7)
  - Polyneuropathy [Not Recovered/Not Resolved]
  - Guillain-Barre syndrome [Not Recovered/Not Resolved]
  - Radiculopathy [Unknown]
  - Muscular weakness [Not Recovered/Not Resolved]
  - Hypoaesthesia [Unknown]
  - Paraplegia [Unknown]
  - Ataxia [Unknown]
